FAERS Safety Report 12219934 (Version 2)
Quarter: 2016Q2

REPORT INFORMATION
  Report Type: Spontaneous
  Country: UA (occurrence: UA)
  Receive Date: 20160330
  Receipt Date: 20160407
  Transmission Date: 20160815
  Serious: Yes (Death)
  Sender: FDA-Public Use
  Company Number: UA-ROCHE-1732222

PATIENT
  Age: 38 Year
  Sex: Male

DRUGS (4)
  1. CEFTRIAXONE. [Suspect]
     Active Substance: CEFTRIAXONE
     Indication: PNEUMONIA BACTERIAL
     Route: 042
  2. CEFTAZIDIM [Suspect]
     Active Substance: CEFTAZIDIME
     Indication: PNEUMONIA BACTERIAL
     Route: 042
  3. TAMIFLU [Concomitant]
     Active Substance: OSELTAMIVIR PHOSPHATE
     Indication: H1N1 INFLUENZA
     Route: 065
  4. GATIFLOXACIN. [Suspect]
     Active Substance: GATIFLOXACIN
     Indication: PNEUMONIA BACTERIAL
     Dosage: 400 MG ONCE
     Route: 042

REACTIONS (1)
  - Acute respiratory failure [Fatal]
